FAERS Safety Report 15947369 (Version 1)
Quarter: 2019Q1

REPORT INFORMATION
  Report Type: Spontaneous
  Country: US (occurrence: US)
  Receive Date: 20190211
  Receipt Date: 20190211
  Transmission Date: 20190417
  Serious: Yes (Hospitalization, Other)
  Sender: FDA-Public Use
  Company Number: US-GILEAD-2019-0389875

PATIENT
  Age: 52 Year
  Sex: Male

DRUGS (23)
  1. LASIX [Concomitant]
     Active Substance: FUROSEMIDE
     Dosage: 80 MG, TID
  2. HYDROCORTISONE. [Concomitant]
     Active Substance: HYDROCORTISONE
  3. SEROQUEL [Concomitant]
     Active Substance: QUETIAPINE FUMARATE
  4. LOPERAMIDE [Concomitant]
     Active Substance: LOPERAMIDE
  5. VENLAFAXINE XR [Concomitant]
     Active Substance: VENLAFAXINE HYDROCHLORIDE
  6. TRUVADA [Suspect]
     Active Substance: EMTRICITABINE\TENOFOVIR DISOPROXIL FUMARATE
     Indication: HEPATITIS B
     Dosage: 200-300 MG, QD
     Route: 048
  7. TIOTROPIUM [Concomitant]
     Active Substance: TIOTROPIUM
  8. ISONIAZID. [Concomitant]
     Active Substance: ISONIAZID
  9. TESTOSTERONE CYPIONATE. [Concomitant]
     Active Substance: TESTOSTERONE CYPIONATE
  10. IMIQUIMOD. [Concomitant]
     Active Substance: IMIQUIMOD
  11. RITONAVIR. [Concomitant]
     Active Substance: RITONAVIR
     Dosage: 200 MG, QD
  12. ALBUTEROL [SALBUTAMOL] [Concomitant]
     Active Substance: ALBUTEROL
  13. GABAPENTIN. [Concomitant]
     Active Substance: GABAPENTIN
  14. PRAVASTATIN. [Concomitant]
     Active Substance: PRAVASTATIN
  15. DARUNAVIR [Concomitant]
     Active Substance: DARUNAVIR
     Dosage: 1200 MG, QD
  16. ADVAIR HFA [Concomitant]
     Active Substance: FLUTICASONE PROPIONATE\SALMETEROL XINAFOATE
     Dosage: 100/50 MCG, UNK
  17. ERGOCALCIFEROL. [Concomitant]
     Active Substance: ERGOCALCIFEROL
  18. RALTEGRAVIR. [Concomitant]
     Active Substance: RALTEGRAVIR
     Dosage: 800 MG, QD
  19. FLUTICASONE;SALMETEROL [Concomitant]
  20. PYRIDOXINE [Concomitant]
     Active Substance: PYRIDOXINE
  21. PANTOPRAZOLE [Concomitant]
     Active Substance: PANTOPRAZOLE
  22. METOPROLOL. [Concomitant]
     Active Substance: METOPROLOL
  23. POTASSIUM CHLORIDE. [Concomitant]
     Active Substance: POTASSIUM CHLORIDE

REACTIONS (3)
  - Ascites [Unknown]
  - Fluid overload [Recovered/Resolved]
  - Left ventricular failure [Recovered/Resolved]

NARRATIVE: CASE EVENT DATE: 20130430
